FAERS Safety Report 9546934 (Version 1)
Quarter: 2013Q2

REPORT INFORMATION
  Report Type: Spontaneous
  Country: US (occurrence: None)
  Receive Date: 20130606
  Receipt Date: 20130606
  Transmission Date: 20140414
  Serious: Yes (Death)
  Sender: FDA-Public Use
  Company Number: 2013SIPUSA00018

PATIENT
  Age: 82 Year
  Sex: Male
  Weight: 105.5 kg

DRUGS (18)
  1. SIPULEUCEL-T [Suspect]
     Indication: PROSTATE CANCER METASTATIC
     Route: 042
     Dates: start: 20120719, end: 20120719
  2. LEXAPRO (ESCITALOPRAM OXALATE) [Concomitant]
  3. ABIRATERONE (ABIRATERONE ACETATE) [Concomitant]
  4. PREDNISONE (PREDNISONE) [Concomitant]
  5. MULTIVITAMIN (VITAMIN NOS) [Concomitant]
  6. CELEBREX (CELECOXIB) [Concomitant]
  7. ALEVE (NAPROXEN SODIUM) [Concomitant]
  8. LUPRON (LEUPRORELIN ACETATE) [Concomitant]
  9. CYANOCOBALAMIN (CYANOCOBALAMIN) [Concomitant]
  10. ZOMETA (ZOLEDRONICACID) [Concomitant]
  11. SANCTURA (TROSPIUM CHLORIDE) [Concomitant]
  12. VICODIN (HYDROCODONE BITARTRATE, PARACETAMOL) [Concomitant]
  13. CARDURA (DOXAZOSIN MESILATE) [Concomitant]
  14. BUSPAR (BUSPIRONE HYDROCHLORIDE) [Concomitant]
  15. CLOTRIMAZOLE AND BETAMETHASONE (BETAMETHASONE, CLOTRIMAZOLE) [Concomitant]
  16. TYLENOL (PARACETAMOL) [Concomitant]
  17. CALCIUM (CALCIUIM) [Concomitant]
  18. VITAMIN D (ERGOCALCIFEROL) [Concomitant]

REACTIONS (1)
  - Disease progression [None]
